FAERS Safety Report 24300867 (Version 1)
Quarter: 2024Q3

REPORT INFORMATION
  Report Type: Spontaneous
  Country: US (occurrence: US)
  Receive Date: 20240910
  Receipt Date: 20240910
  Transmission Date: 20241017
  Serious: No
  Sender: ASTELLAS
  Company Number: US-ASTELLAS-2024-AER-003526

PATIENT
  Age: 56 Year
  Sex: Female

DRUGS (2)
  1. VEOZAH [Suspect]
     Active Substance: FEZOLINETANT
     Indication: Product used for unknown indication
     Dosage: STOPPED
     Route: 050
  2. VEOZAH [Suspect]
     Active Substance: FEZOLINETANT
     Dosage: RESTARTED AND STOPPED AGAIN
     Route: 050

REACTIONS (1)
  - Irritable bowel syndrome [Recovered/Resolved]
